FAERS Safety Report 21365188 (Version 1)
Quarter: 2022Q3

REPORT INFORMATION
  Report Type: Spontaneous
  Country: US (occurrence: US)
  Receive Date: 20220922
  Receipt Date: 20220922
  Transmission Date: 20221027
  Serious: Yes (Other)
  Sender: FDA-Public Use
  Company Number: US-GLAXOSMITHKLINE-US2022AMR134981

PATIENT
  Sex: Female

DRUGS (2)
  1. ZEJULA [Suspect]
     Active Substance: NIRAPARIB
     Indication: Ovarian cancer
     Dosage: 200 MG, QD
     Dates: start: 202109
  2. ZEJULA [Suspect]
     Active Substance: NIRAPARIB
     Dosage: UNK (200 MG ALTERNATING WITH 100 MG)

REACTIONS (2)
  - Thrombocytopenia [Unknown]
  - Off label use [Unknown]
